FAERS Safety Report 5770701-1 (Version None)
Quarter: 2008Q2

REPORT INFORMATION
  Report Type: 
  Country: None (occurrence: None)
  Receive Date: 20080613
  Receipt Date: 20080507
  Transmission Date: 20081010
  Serious: No
  Sender: FDA-Public Use
  Company Number: US-ABBOTT-08P-163-0451300-00

PATIENT
  Sex: Female
  Weight: 51.302 kg

DRUGS (17)
  1. HUMIRA [Suspect]
     Indication: RHEUMATOID ARTHRITIS
     Route: 058
     Dates: start: 20080101
  2. METHOTREXATE [Concomitant]
     Indication: RHEUMATOID ARTHRITIS
     Dosage: EIGHT TABLETS WEEKLY
     Route: 048
     Dates: end: 20080129
  3. METHOTREXATE [Concomitant]
     Dosage: SIX TABLETS WEEKL
     Route: 048
     Dates: start: 20080129, end: 20080214
  4. METHOTREXATE [Concomitant]
     Dosage: FOUR TABLES WEEKLY
     Route: 048
     Dates: start: 20080304, end: 20080304
  5. METHOTREXATE [Concomitant]
     Dosage: THREE TABLETS WEEKLY
     Route: 048
     Dates: end: 20080325
  6. METHOTREXATE [Concomitant]
     Dosage: FOUR TABLETS WEEKLY
     Route: 048
     Dates: start: 20080401
  7. METHOTREXATE [Concomitant]
     Route: 048
     Dates: start: 20080326
  8. CETIRIZINE HYDROCHLORIDE [Concomitant]
     Indication: SEASONAL ALLERGY
     Route: 048
     Dates: start: 20040101
  9. FLUTICASONE PROPIONATE [Concomitant]
     Indication: SEASONAL ALLERGY
     Dosage: NASAL
     Route: 061
     Dates: start: 20040101
  10. PSEUDOEPHEDRINE HYDROCHLORIDE [Concomitant]
     Indication: SEASONAL ALLERGY
     Route: 048
     Dates: start: 20040101
  11. FOLIC ACID [Concomitant]
     Indication: RHEUMATOID ARTHRITIS
     Route: 048
     Dates: start: 20080101
  12. HYDROXYCHLOROQUINE SULFATE [Concomitant]
     Indication: RHEUMATOID ARTHRITIS
     Route: 048
     Dates: start: 20020101
  13. CELECOXIB [Concomitant]
     Indication: RHEUMATOID ARTHRITIS
     Route: 048
     Dates: start: 20040101
  14. VITAMIN CAP [Concomitant]
     Indication: VITAMIN SUPPLEMENTATION
     Route: 048
     Dates: start: 20030101
  15. ERGOCALCIFEROL [Concomitant]
     Indication: VITAMIN SUPPLEMENTATION
     Route: 048
     Dates: start: 20030101
  16. CALCIUM [Concomitant]
     Indication: MINERAL SUPPLEMENTATION
     Dosage: WE STARTED SEEING HER IN DEC 2007, I DON'T KNOW WHEN SHE STARTED ANY OF HER MEDS.
     Route: 048
     Dates: start: 20030101
  17. TRAZODONE HCL [Concomitant]
     Indication: SLEEP DISORDER THERAPY
     Dosage: AT BEDTIME
     Route: 048

REACTIONS (3)
  - FATIGUE [None]
  - INJECTION SITE REACTION [None]
  - VIRAL INFECTION [None]
